FAERS Safety Report 9010565 (Version 2)
Quarter: 2013Q1

REPORT INFORMATION
  Report Type: Spontaneous
  Country: DK (occurrence: DK)
  Receive Date: 20130109
  Receipt Date: 20130123
  Transmission Date: 20140127
  Serious: Yes (Hospitalization)
  Sender: FDA-Public Use
  Company Number: DK-SANOFI-AVENTIS-2013SA001345

PATIENT
  Age: 71 Year
  Sex: Female

DRUGS (3)
  1. HYDROXYCHLOROQUINE [Suspect]
     Indication: DERMATOMYOSITIS
     Route: 065
  2. PREDNISOLONE [Suspect]
     Indication: DERMATOMYOSITIS
     Route: 065
  3. METHOTREXATE [Suspect]
     Indication: DERMATOMYOSITIS
     Route: 065

REACTIONS (5)
  - Arthritis bacterial [Recovered/Resolved]
  - Joint swelling [Recovered/Resolved]
  - Fatigue [Recovered/Resolved]
  - Weight decreased [Recovered/Resolved]
  - C-reactive protein increased [Recovered/Resolved]
